FAERS Safety Report 9438170 (Version 1)
Quarter: 2013Q3

REPORT INFORMATION
  Report Type: Spontaneous
  Country: US (occurrence: US)
  Receive Date: 20130802
  Receipt Date: 20130802
  Transmission Date: 20140515
  Serious: No
  Sender: FDA-Public Use
  Company Number: US-BRISTOL-MYERS SQUIBB COMPANY-16937807

PATIENT
  Age: 79 Year
  Sex: Female
  Weight: 90 kg

DRUGS (2)
  1. COUMADIN [Suspect]
     Indication: ATRIAL FIBRILLATION
     Dosage: RX# 73841672,1DF:5MG X5,7.5MG X2?LOT# V95726881-1-01010011
     Route: 048
     Dates: start: 200505
  2. SYNTHROID [Concomitant]

REACTIONS (1)
  - Urinary tract infection [Unknown]
